FAERS Safety Report 9524347 (Version 1)
Quarter: 2013Q3

REPORT INFORMATION
  Report Type: Spontaneous
  Country: BR (occurrence: BR)
  Receive Date: 20130916
  Receipt Date: 20130916
  Transmission Date: 20140515
  Serious: Yes (Other)
  Sender: FDA-Public Use
  Company Number: BR-JNJFOC-20130905368

PATIENT
  Sex: Male

DRUGS (1)
  1. INVEGA [Suspect]
     Indication: PRODUCT USED FOR UNKNOWN INDICATION
     Dosage: 3 MG AND 6 MG EVERY NIGHT
     Route: 048

REACTIONS (4)
  - Convulsion [Recovered/Resolved]
  - Insomnia [Unknown]
  - Drug dose omission [Unknown]
  - Treatment noncompliance [Unknown]
